FAERS Safety Report 9058532 (Version 1)
Quarter: 2013Q1

REPORT INFORMATION
  Report Type: Spontaneous
  Country: US (occurrence: US)
  Receive Date: 20130211
  Receipt Date: 20130211
  Transmission Date: 20140127
  Serious: Yes (Hospitalization, Other)
  Sender: FDA-Public Use
  Company Number: US-AMGEN-USASP2013002162

PATIENT
  Sex: Female

DRUGS (1)
  1. ENBREL [Suspect]
     Indication: RHEUMATOID ARTHRITIS
     Dosage: 50 MG, QWK
     Dates: start: 20021204, end: 201212

REACTIONS (7)
  - Large intestine perforation [Recovered/Resolved]
  - Diverticulitis [Not Recovered/Not Resolved]
  - Knee arthroplasty [Recovered/Resolved]
  - Joint destruction [Recovered/Resolved]
  - Finger deformity [Not Recovered/Not Resolved]
  - Pruritus [Recovered/Resolved]
  - Blister [Recovered/Resolved]
